FAERS Safety Report 8943710 (Version 1)
Quarter: 2012Q4

REPORT INFORMATION
  Report Type: 
  Country: BR (occurrence: BR)
  Receive Date: 20121203
  Receipt Date: 20121203
  Transmission Date: 20130627
  Serious: Yes (Hospitalization, Other)
  Sender: FDA-Public Use
  Company Number: BR-GLAXOSMITHKLINE-A0746450A

PATIENT
  Age: 21 Month
  Sex: Male

DRUGS (2)
  1. ZYRTEC [Suspect]
     Indication: VIRAL INFECTION
     Dosage: 3ML Single dose
     Route: 048
     Dates: start: 20080820, end: 20080820
  2. FLIXOTIDE [Suspect]
     Indication: ASTHMA
     Route: 065
     Dates: start: 200807

REACTIONS (6)
  - Oculogyric crisis [Not Recovered/Not Resolved]
  - Pyrexia [Not Recovered/Not Resolved]
  - Rhinorrhoea [Not Recovered/Not Resolved]
  - Cough [Not Recovered/Not Resolved]
  - Eye movement disorder [Unknown]
  - Extrapyramidal disorder [Not Recovered/Not Resolved]
